FAERS Safety Report 6086235-3 (Version None)
Quarter: 2009Q1

REPORT INFORMATION
  Report Type: 
  Country: None (occurrence: None)
  Receive Date: 20090220
  Receipt Date: 20090212
  Transmission Date: 20090719
  Serious: Yes (Death)
  Sender: FDA-Public Use
  Company Number: US-PURDUE-USA_2009_0036882

PATIENT
  Age: 57 Year
  Sex: Female

DRUGS (10)
  1. OXYCONTIN [Suspect]
     Indication: CANCER PAIN
     Dosage: 20 MG, BID
     Dates: start: 20080401, end: 20090122
  2. TOPROL-XL [Concomitant]
     Dosage: 50 MG, DAILY
  3. PROMETHAZINE [Concomitant]
     Dosage: 25 MG, DAILY
  4. PENTOXIFYLLINE [Concomitant]
     Dosage: 400 MG, TID
  5. CELEXA [Concomitant]
     Dosage: 20 MG, DAILY
  6. DEXAMETHASONE [Concomitant]
     Dosage: 4 MG, UNK
  7. FIBERCON                           /00567702/ [Concomitant]
     Dosage: 525 MG, DAILY
  8. CLINDAMYCIN HCL [Concomitant]
     Dosage: 300 MG, TID
  9. PROTONIX                           /01263201/ [Concomitant]
     Dosage: 40 MG, DAILY
  10. CALTRATE 600 + D [Concomitant]
     Dosage: 600 MG, DAILY

REACTIONS (1)
  - NEOPLASM MALIGNANT [None]
